FAERS Safety Report 9876162 (Version 2)
Quarter: 2014Q1

REPORT INFORMATION
  Report Type: Other
  Country: US (occurrence: US)
  Receive Date: 20140206
  Receipt Date: 20140206
  Transmission Date: 20141002
  Serious: No
  Sender: FDA-Public Use
  Company Number: US-ACORDA-ACO_35654_2013

PATIENT
  Age: 55 Year
  Sex: Female
  Weight: 94.33 kg

DRUGS (3)
  1. AMPYRA [Suspect]
     Indication: GAIT DISTURBANCE
     Dosage: 10 MG, Q 12 HRS
     Route: 048
     Dates: start: 201303, end: 201304
  2. AMPYRA [Suspect]
     Dosage: 10 UNK, UNK
     Route: 048
     Dates: start: 201304
  3. AVONEX [Concomitant]
     Indication: PRODUCT USED FOR UNKNOWN INDICATION
     Dosage: UNK

REACTIONS (5)
  - Gait disturbance [Recovered/Resolved]
  - Dysstasia [Unknown]
  - Fall [Recovered/Resolved]
  - Asthenia [Unknown]
  - Balance disorder [Recovered/Resolved]
